FAERS Safety Report 8553625-6 (Version None)
Quarter: 2012Q3

REPORT INFORMATION
  Report Type: 
  Country: None (occurrence: None)
  Receive Date: 20120731
  Receipt Date: 20120726
  Transmission Date: 20120928
  Serious: Yes (Other)
  Sender: FDA-Public Use
  Company Number: PHHY2012US065038

PATIENT
  Age: 31 Year
  Sex: Male

DRUGS (1)
  1. TRAMADOL HYDROCHLORIDE [Suspect]
     Dosage: 84 DF, UNK
     Route: 048

REACTIONS (8)
  - INTENTIONAL OVERDOSE [None]
  - TONIC CONVULSION [None]
  - BLOOD PRESSURE INCREASED [None]
  - TACHYCARDIA [None]
  - SUICIDE ATTEMPT [None]
  - DRUG SCREEN FALSE POSITIVE [None]
  - CONFUSIONAL STATE [None]
  - ANXIETY [None]
